FAERS Safety Report 22382392 (Version 1)
Quarter: 2023Q2

REPORT INFORMATION
  Report Type: Spontaneous
  Country: US (occurrence: US)
  Receive Date: 20230530
  Receipt Date: 20230530
  Transmission Date: 20230721
  Serious: Yes (Other)
  Sender: FDA-Public Use
  Company Number: US-COLLEGIUM PHARMACEUTICAL, INC.-20230500441

PATIENT

DRUGS (1)
  1. NUCYNTA ER [Suspect]
     Active Substance: TAPENTADOL HYDROCHLORIDE
     Indication: Cervical vertebral fracture
     Dosage: 50 MILLIGRAM, EVERY 12 HOURS
     Route: 065

REACTIONS (2)
  - Hypertension [Unknown]
  - Feeling abnormal [Unknown]
